FAERS Safety Report 12701949 (Version 1)
Quarter: 2016Q3

REPORT INFORMATION
  Report Type: Spontaneous
  Country: US (occurrence: US)
  Receive Date: 20160831
  Receipt Date: 20160831
  Transmission Date: 20161109
  Serious: No
  Sender: FDA-Public Use
  Company Number: US-JAZZ-2016-US-007688

PATIENT
  Sex: Female

DRUGS (31)
  1. PROAIR HFA [Concomitant]
     Active Substance: ALBUTEROL SULFATE
  2. NIASPAN [Concomitant]
     Active Substance: NIACIN
  3. ZOCOR [Concomitant]
     Active Substance: SIMVASTATIN
  4. CRESTOR [Concomitant]
     Active Substance: ROSUVASTATIN CALCIUM
  5. XYREM [Suspect]
     Active Substance: SODIUM OXYBATE
     Indication: NARCOLEPSY
     Dosage: 2.25 G, BID
     Route: 048
     Dates: start: 200401, end: 200402
  6. VENLAFAXINE HCL [Concomitant]
     Active Substance: VENLAFAXINE HYDROCHLORIDE
  7. ALPRAZOLAM. [Concomitant]
     Active Substance: ALPRAZOLAM
  8. LOVAZA [Concomitant]
     Active Substance: OMEGA-3-ACID ETHYL ESTERS
  9. LISINOPRIL. [Concomitant]
     Active Substance: LISINOPRIL
  10. CHANTIX [Concomitant]
     Active Substance: VARENICLINE TARTRATE
  11. PENICILLIN VK [Concomitant]
     Active Substance: PENICILLIN V POTASSIUM
  12. SPIRONOLACTONE. [Concomitant]
     Active Substance: SPIRONOLACTONE
  13. ASPIRIN. [Concomitant]
     Active Substance: ASPIRIN
  14. METFORMIN HCL [Concomitant]
     Active Substance: METFORMIN HYDROCHLORIDE
  15. LEVOTHYROXINE SODIUM. [Concomitant]
     Active Substance: LEVOTHYROXINE SODIUM
  16. TIZANIDINE HCL [Concomitant]
     Active Substance: TIZANIDINE HYDROCHLORIDE
  17. ERRIN [Concomitant]
     Active Substance: NORETHINDRONE
  18. ASPIRIN BUFFERED [Concomitant]
     Active Substance: ASPIRIN
  19. IBUPROFEN. [Concomitant]
     Active Substance: IBUPROFEN
  20. XYREM [Suspect]
     Active Substance: SODIUM OXYBATE
     Indication: CATAPLEXY
     Dosage: DOSE ADJUSTMENTS
     Route: 048
  21. EFFEXOR [Concomitant]
     Active Substance: VENLAFAXINE HYDROCHLORIDE
  22. PROGESTERONE. [Concomitant]
     Active Substance: PROGESTERONE
  23. BYETTA [Concomitant]
     Active Substance: EXENATIDE
  24. COENZYME Q10 [Concomitant]
     Active Substance: UBIDECARENONE
  25. RITALIN [Concomitant]
     Active Substance: METHYLPHENIDATE HYDROCHLORIDE
  26. DETROL [Concomitant]
     Active Substance: TOLTERODINE TARTRATE
  27. XYREM [Suspect]
     Active Substance: SODIUM OXYBATE
     Dosage: 4.5 G, BID
     Route: 048
     Dates: start: 200602
  28. PINDOLOL. [Concomitant]
     Active Substance: PINDOLOL
  29. LANTUS [Concomitant]
     Active Substance: INSULIN GLARGINE
  30. ASMANEX [Concomitant]
     Active Substance: MOMETASONE FUROATE
  31. SIMVASTATIN. [Concomitant]
     Active Substance: SIMVASTATIN

REACTIONS (1)
  - Seasonal allergy [Not Recovered/Not Resolved]
